FAERS Safety Report 7763766-9 (Version None)
Quarter: 2011Q3

REPORT INFORMATION
  Report Type: 
  Country: None (occurrence: None)
  Receive Date: 20110919
  Receipt Date: 20110909
  Transmission Date: 20111222
  Serious: Yes (Life-Threatening, Hospitalization)
  Sender: FDA-Public Use
  Company Number: 2011SP042797

PATIENT
  Age: 88 Year
  Sex: Female
  Weight: 56 kg

DRUGS (12)
  1. INTEGRILIN [Suspect]
     Indication: PRODUCT USED FOR UNKNOWN INDICATION
     Dosage: 54.0 MG; IV
     Route: 042
  2. VERAPAMIL HCL [Concomitant]
  3. MUCOMYST [Concomitant]
  4. ENTROPHEN [Concomitant]
  5. FENTANYL CITRATE [Concomitant]
  6. PANTOPRAZOLE [Concomitant]
  7. GRAVOL TAB [Concomitant]
  8. HEPARIN SODIUM [Concomitant]
  9. MIDAZOLAM HCL [Concomitant]
  10. PLAVIX [Concomitant]
  11. SODIUM BICARBONATE [Concomitant]
  12. NITROGLYCERIN [Concomitant]

REACTIONS (1)
  - DISSEMINATED INTRAVASCULAR COAGULATION [None]
